FAERS Safety Report 4514149-6 (Version None)
Quarter: 2004Q4

REPORT INFORMATION
  Report Type: 
  Country: None (occurrence: None)
  Receive Date: 20041124
  Receipt Date: 20041110
  Transmission Date: 20050328
  Serious: Yes (Hospitalization)
  Sender: FDA-Public Use
  Company Number: 2004AP05755

PATIENT
  Age: 63 Year
  Sex: Male

DRUGS (5)
  1. NEXIUM [Suspect]
     Dates: start: 20031130
  2. PARIET [Suspect]
     Dates: start: 20031209
  3. AVAPRO [Concomitant]
  4. NORVASC [Concomitant]
  5. LIPITOR [Concomitant]

REACTIONS (4)
  - DYSPEPSIA [None]
  - FATIGUE [None]
  - HAEMATURIA [None]
  - RENAL FAILURE [None]
